FAERS Safety Report 13210479 (Version 2)
Quarter: 2017Q1

REPORT INFORMATION
  Report Type: Spontaneous
  Country: JP (occurrence: JP)
  Receive Date: 20170210
  Receipt Date: 20170302
  Transmission Date: 20170428
  Serious: No
  Sender: FDA-Public Use
  Company Number: JP-VIFOR (INTERNATIONAL) INC.-VIT-2016-09216

PATIENT
  Age: 66 Year
  Sex: Male
  Weight: 52.2 kg

DRUGS (9)
  1. OLMETEC OD [Concomitant]
     Indication: HYPERTENSION
     Route: 048
     Dates: start: 20161220
  2. WARFARIN POTASSIUM [Concomitant]
     Active Substance: WARFARIN POTASSIUM
     Indication: AORTIC VALVE REPLACEMENT
     Route: 048
  3. RENAGEL [Concomitant]
     Active Substance: SEVELAMER HYDROCHLORIDE
  4. FUROSEMIDE. [Concomitant]
     Active Substance: FUROSEMIDE
     Indication: HYPERTENSION
     Route: 048
     Dates: start: 20071226
  5. VELPHORO [Suspect]
     Active Substance: FERRIC OXYHYDROXIDE
     Indication: HYPERPHOSPHATAEMIA
     Route: 048
     Dates: start: 20161220, end: 20161224
  6. MERCAZOLE [Concomitant]
     Active Substance: CARBIMAZOLE
     Indication: HYPERPHOSPHATAEMIA
     Route: 048
  7. REGPARA [Concomitant]
     Active Substance: CINACALCET HYDROCHLORIDE
     Indication: HYPERPARATHYROIDISM SECONDARY
     Route: 048
     Dates: start: 20080610
  8. CALTAN [Concomitant]
     Active Substance: CALCIUM CARBONATE
     Indication: HYPERPARATHYROIDISM SECONDARY
     Route: 048
     Dates: start: 20080610
  9. OLMETEC OD [Concomitant]

REACTIONS (4)
  - Vomiting [Recovered/Resolved]
  - Hypophosphataemia [Recovered/Resolved]
  - Hypokalaemia [Recovered/Resolved]
  - Nausea [Recovered/Resolved]

NARRATIVE: CASE EVENT DATE: 20161220
